FAERS Safety Report 25129345 (Version 3)
Quarter: 2025Q2

REPORT INFORMATION
  Report Type: Spontaneous
  Country: US (occurrence: US)
  Receive Date: 20250327
  Receipt Date: 20250404
  Transmission Date: 20250716
  Serious: No
  Sender: ELI LILLY AND CO
  Company Number: US-ELI_LILLY_AND_COMPANY-US202503022784

PATIENT
  Age: 17 Year
  Sex: Male

DRUGS (1)
  1. TALTZ [Suspect]
     Active Substance: IXEKIZUMAB
     Indication: Psoriasis
     Route: 058

REACTIONS (6)
  - Alopecia [Unknown]
  - Dyspepsia [Unknown]
  - Weight decreased [Unknown]
  - Infection [Unknown]
  - Gastrointestinal disorder [Unknown]
  - Injection site erythema [Recovered/Resolved]
